FAERS Safety Report 8501065-8 (Version None)
Quarter: 2012Q2

REPORT INFORMATION
  Report Type: 
  Country: None (occurrence: None)
  Receive Date: 20120405
  Receipt Date: 20110228
  Transmission Date: 20120825
  Serious: Yes (Other)
  Sender: FDA-Public Use
  Company Number: PHHY2011US16681

PATIENT
  Age: 68 Year
  Sex: Female
  Weight: 80.3 kg

DRUGS (5)
  1. RECLAST [Suspect]
     Indication: OSTEOPOROSIS POSTMENOPAUSAL
     Dosage: 5MG/100 ML, INTRAVENOUS
     Route: 042
  2. PRAVASTATIN [Concomitant]
  3. FUROSEMIDE (FUROSEMIDE) [Concomitant]
  4. VITAMIN D [Concomitant]
  5. LISINOPRIL [Concomitant]

REACTIONS (2)
  - SYNCOPE [None]
  - INFLUENZA LIKE ILLNESS [None]
